FAERS Safety Report 5661165-7 (Version None)
Quarter: 2008Q1

REPORT INFORMATION
  Report Type: 
  Country: None (occurrence: None)
  Receive Date: 20080303
  Receipt Date: 20080220
  Transmission Date: 20080703
  Serious: Yes (Hospitalization)
  Sender: FDA-Public Use
  Company Number: WAES 0802USA04409

PATIENT
  Age: 71 Year
  Sex: Male
  Weight: 106.5953 kg

DRUGS (8)
  1. DECADRON [Suspect]
     Indication: HEADACHE
     Dosage: PO
     Route: 048
     Dates: end: 20071001
  2. THALIDOMIDE [Suspect]
     Indication: GLIOBLASTOMA MULTIFORME
     Dosage: 400 MG/DAILY/PO
     Route: 048
     Dates: start: 20071009
  3. TEMODAR [Suspect]
     Indication: GLIOBLASTOMA MULTIFORME
     Dosage: 300 MG/DAILY/PO
     Route: 048
     Dates: start: 20071009
  4. ACCUTANE [Suspect]
     Indication: GLIOBLASTOMA MULTIFORME
     Dosage: 80 MG/BID
     Dates: start: 20071009
  5. CELEBREX [Suspect]
     Indication: GLIOBLASTOMA MULTIFORME
     Dosage: 400 MG/BID/PO
     Route: 048
     Dates: start: 20071009
  6. LASIX [Concomitant]
  7. PRILOSEC [Concomitant]
  8. POTASSIUM (UNSPECIFIED) [Concomitant]

REACTIONS (6)
  - CHEST PAIN [None]
  - DYSPNOEA [None]
  - FLUID RETENTION [None]
  - GASTROOESOPHAGEAL REFLUX DISEASE [None]
  - OEDEMA PERIPHERAL [None]
  - WEIGHT INCREASED [None]
